FAERS Safety Report 7241855-5 (Version None)
Quarter: 2011Q1

REPORT INFORMATION
  Report Type: 
  Country: None (occurrence: None)
  Receive Date: 20110124
  Receipt Date: 20110114
  Transmission Date: 20110831
  Serious: Yes (Disabling)
  Sender: FDA-Public Use
  Company Number: PHHY2011RO02592

PATIENT
  Sex: Female

DRUGS (2)
  1. ZOMETA [Suspect]
     Indication: METASTASES TO BONE
     Dosage: 4 MG, QMO
  2. FASLODEX [Concomitant]
     Indication: METASTASES TO BONE
     Dosage: 500 MG, QMO

REACTIONS (5)
  - BONE LESION [None]
  - ULCER [None]
  - ERYTHEMA [None]
  - PAIN IN JAW [None]
  - SWELLING [None]
